FAERS Safety Report 11719528 (Version 2)
Quarter: 2015Q4

REPORT INFORMATION
  Report Type: Spontaneous
  Country: US (occurrence: US)
  Receive Date: 20151110
  Receipt Date: 20151118
  Transmission Date: 20160304
  Serious: Yes (Death, Hospitalization, Other)
  Sender: FDA-Public Use
  Company Number: US-BRISTOL-MYERS SQUIBB COMPANY-BMS-2015-076867

PATIENT
  Age: 7 Decade
  Sex: Female

DRUGS (1)
  1. OPDIVO [Suspect]
     Active Substance: NIVOLUMAB
     Indication: SQUAMOUS CELL CARCINOMA OF LUNG
     Dosage: UNK
     Route: 042

REACTIONS (7)
  - Fatigue [Unknown]
  - Blood thyroid stimulating hormone increased [Unknown]
  - Liver function test abnormal [Unknown]
  - Myasthenia gravis [Unknown]
  - Coma [Unknown]
  - Eyelid ptosis [Unknown]
  - Toxicity to various agents [Fatal]

NARRATIVE: CASE EVENT DATE: 20151105
